FAERS Safety Report 5497873-0 (Version None)
Quarter: 2007Q4

REPORT INFORMATION
  Report Type: 
  Country: None (occurrence: None)
  Receive Date: 20071018
  Receipt Date: 20061201
  Transmission Date: 20080405
  Serious: Yes (Other)
  Sender: FDA-Public Use
  Company Number: 2004105574

PATIENT
  Age: 80 Year
  Sex: Female

DRUGS (5)
  1. NEURONTIN [Suspect]
     Indication: NEUROPATHY PERIPHERAL
     Dosage: 600 MG (300 MG, 2 IN 1 D)
     Dates: start: 20040903
  2. LYRICA [Suspect]
     Indication: NEUROPATHY PERIPHERAL
     Dosage: 50 MG (50 MG, 1 IN 1 D)
     Dates: start: 20060901
  3. FOSAMAX [Concomitant]
  4. FEMHRT [Concomitant]
  5. CORTISONE ACETATE [Concomitant]

REACTIONS (7)
  - DIZZINESS [None]
  - FATIGUE [None]
  - GASTROINTESTINAL MOTILITY DISORDER [None]
  - ILL-DEFINED DISORDER [None]
  - PAIN [None]
  - TREMOR [None]
  - VISION BLURRED [None]
